FAERS Safety Report 6833558-3 (Version None)
Quarter: 2010Q3

REPORT INFORMATION
  Report Type: 
  Country: None (occurrence: None)
  Receive Date: 20100712
  Receipt Date: 20070327
  Transmission Date: 20110219
  Serious: No
  Sender: FDA-Public Use
  Company Number: US-PFIZER INC-2007026062

PATIENT
  Sex: Female
  Weight: 56.7 kg

DRUGS (4)
  1. CHANTIX [Suspect]
     Indication: SMOKING CESSATION THERAPY
     Dates: start: 20070322
  2. PROZAC [Concomitant]
  3. CLONAZEPAM [Concomitant]
  4. TRAZODONE [Concomitant]

REACTIONS (8)
  - CHILLS [None]
  - COUGH [None]
  - DIZZINESS [None]
  - DYSGEUSIA [None]
  - DYSPNOEA [None]
  - FATIGUE [None]
  - PYREXIA [None]
  - RESPIRATORY TRACT INFECTION [None]
